FAERS Safety Report 4606447-2 (Version None)
Quarter: 2005Q1

REPORT INFORMATION
  Report Type: 
  Country: None (occurrence: None)
  Receive Date: 20050311
  Receipt Date: 20050203
  Transmission Date: 20050727
  Serious: Yes (Disabling)
  Sender: FDA-Public Use
  Company Number: US-MERCK-0502USA00424

PATIENT
  Age: 60 Year
  Sex: Male
  Weight: 105 kg

DRUGS (19)
  1. VIOXX [Suspect]
     Indication: ARTHRALGIA
     Route: 048
     Dates: start: 20030903, end: 20041001
  2. LOTENSIN [Concomitant]
     Route: 048
  3. HYDROCHLOROTHIAZIDE [Concomitant]
     Route: 065
  4. HYDROCHLOROTHIAZIDE [Concomitant]
     Route: 065
  5. ASPIRIN [Concomitant]
     Route: 048
  6. NIACIN [Concomitant]
     Route: 065
  7. VITAMINS (UNSPECIFIED) [Concomitant]
     Route: 048
  8. GLUCOPHAGE XR [Concomitant]
     Route: 048
  9. LOPID [Concomitant]
     Route: 065
  10. ASCORBIC ACID [Concomitant]
     Route: 065
  11. VITAMIN E [Concomitant]
     Route: 065
  12. FISH OIL (UNSPECIFIED) [Concomitant]
     Route: 065
  13. GRAPE SEEDS [Concomitant]
     Route: 065
  14. CAMELLIA SINENSIS [Concomitant]
     Route: 065
  15. CLONAZEPAM [Concomitant]
     Route: 048
  16. BUSPIRONE HYDROCHLORIDE [Concomitant]
     Route: 065
  17. FLAXSEED [Concomitant]
     Route: 065
  18. GARLIC EXTRACT [Concomitant]
     Route: 065
  19. TIZANIDINE HYDROCHLORIDE [Concomitant]
     Route: 065

REACTIONS (9)
  - BRADYCARDIA [None]
  - CHEST PAIN [None]
  - DIFFICULTY IN WALKING [None]
  - DIZZINESS [None]
  - EJECTION FRACTION DECREASED [None]
  - EXTRASYSTOLES [None]
  - HYPOTENSION [None]
  - HYPOVOLAEMIA [None]
  - PALPITATIONS [None]
